FAERS Safety Report 23446812 (Version 1)
Quarter: 2024Q1

REPORT INFORMATION
  Report Type: Spontaneous
  Country: None (occurrence: US)
  Receive Date: 20240126
  Receipt Date: 20240126
  Transmission Date: 20240410
  Serious: No
  Sender: FDA-Public Use
  Company Number: US-Amphastar Pharmaceuticals, Inc.-2152101

PATIENT
  Age: 33 Year
  Sex: Female
  Weight: 65.909 kg

DRUGS (1)
  1. MEDROXYPROGESTERONE ACETATE [Suspect]
     Active Substance: MEDROXYPROGESTERONE ACETATE
     Indication: Contraception
     Route: 065
     Dates: start: 202112, end: 20220829

REACTIONS (1)
  - Pregnancy test positive [Unknown]

NARRATIVE: CASE EVENT DATE: 20221130
